FAERS Safety Report 8923157 (Version 1)
Quarter: 2012Q4

REPORT INFORMATION
  Report Type: 
  Country: US (occurrence: US)
  Receive Date: 20121123
  Receipt Date: 20121123
  Transmission Date: 20130627
  Serious: Yes (Other)
  Sender: FDA-Public Use
  Company Number: US-JNJFOC-20121107581

PATIENT
  Sex: Female

DRUGS (1)
  1. NICOTINE POLACRILEX GUM 2 MG [Suspect]
     Indication: PRODUCT USED FOR UNKNOWN INDICATION
     Route: 048

REACTIONS (4)
  - Nicotine dependence [Unknown]
  - Intentional drug misuse [Unknown]
  - Tongue discolouration [Unknown]
  - Product quality issue [Unknown]
